FAERS Safety Report 8700048 (Version 3)
Quarter: 2013Q2

REPORT INFORMATION
  Report Type: Spontaneous
  Country: US (occurrence: US)
  Receive Date: 20120802
  Receipt Date: 20130530
  Transmission Date: 20140414
  Serious: Yes (Other)
  Sender: FDA-Public Use
  Company Number: CHPA2012US015610

PATIENT
  Age: 93 Year
  Sex: Male

DRUGS (2)
  1. MAALOX ANTACID/ANTIGAS RS LIQ SMTHCHERRY [Suspect]
     Dosage: UNK, EVERY NIGHT
     Dates: start: 2004
  2. MAALOX ADV MAXIMUM STRENGTH ANTACID/ANTIGAS [Suspect]
     Dosage: UNK, QHS
     Route: 048

REACTIONS (4)
  - Drug dependence [Recovered/Resolved]
  - Dyspepsia [Recovered/Resolved]
  - Constipation [Recovered/Resolved]
  - Incorrect drug administration duration [Unknown]
